FAERS Safety Report 5136777-X (Version None)
Quarter: 2006Q4

REPORT INFORMATION
  Report Type: 
  Country: None (occurrence: None)
  Receive Date: 20061023
  Receipt Date: 20061009
  Transmission Date: 20070319
  Serious: Yes (Hospitalization, Other)
  Sender: FDA-Public Use
  Company Number: 2006-04-2190

PATIENT
  Age: 33 Year
  Sex: Female
  Weight: 99.7913 kg

DRUGS (10)
  1. PEG-INTRON [Suspect]
     Indication: HEPATITIS C
     Dosage: SC
     Route: 058
     Dates: start: 20010101, end: 20010101
  2. PEG-INTRON [Suspect]
     Indication: HEPATITIS C
     Dosage: SC
     Route: 058
     Dates: start: 20060425, end: 20060815
  3. PEG-INTRON [Suspect]
     Indication: HEPATITIS C
     Dosage: SC
     Route: 058
     Dates: start: 20060904, end: 20061003
  4. REBETOL [Suspect]
     Indication: HEPATITIS C
     Dosage: 1200 MG; QD; PO; SEE IMAGE
     Route: 048
     Dates: start: 20010101, end: 20010101
  5. REBETOL [Suspect]
     Indication: HEPATITIS C
     Dosage: 1200 MG; QD; PO; SEE IMAGE
     Route: 048
     Dates: start: 20060425, end: 20060427
  6. REBETOL [Suspect]
     Indication: HEPATITIS C
     Dosage: 1200 MG; QD; PO; SEE IMAGE
     Route: 048
     Dates: start: 20060428, end: 20060815
  7. REBETOL [Suspect]
     Indication: HEPATITIS C
     Dosage: 1200 MG; QD; PO; SEE IMAGE
     Route: 048
     Dates: start: 20060904, end: 20061003
  8. ATIVAN [Concomitant]
  9. HYOSCYAMINE SULFATE [Concomitant]
  10. LEXAPRO [Concomitant]

REACTIONS (65)
  - ABASIA [None]
  - ABDOMINAL DISTENSION [None]
  - ABDOMINAL PAIN UPPER [None]
  - ALOPECIA [None]
  - ANAEMIA [None]
  - ANAL FISSURE [None]
  - ANGIOPATHY [None]
  - ANXIETY [None]
  - ASTHENIA [None]
  - BACK PAIN [None]
  - BLOOD POTASSIUM DECREASED [None]
  - BODY TEMPERATURE DECREASED [None]
  - CHEST PAIN [None]
  - CONDITION AGGRAVATED [None]
  - CONFUSIONAL STATE [None]
  - CONTUSION [None]
  - DEHYDRATION [None]
  - DEPRESSION [None]
  - DIZZINESS POSTURAL [None]
  - DRY MOUTH [None]
  - DYSPNOEA EXERTIONAL [None]
  - EOSINOPHIL COUNT DECREASED [None]
  - EPISTAXIS [None]
  - FATIGUE [None]
  - HAEMOPTYSIS [None]
  - HAEMORRHAGE [None]
  - HALLUCINATION, VISUAL [None]
  - HEADACHE [None]
  - HOT FLUSH [None]
  - HYPERTENSION [None]
  - INFLUENZA LIKE ILLNESS [None]
  - INFREQUENT BOWEL MOVEMENTS [None]
  - INJECTION SITE ERYTHEMA [None]
  - INJECTION SITE PAIN [None]
  - INJECTION SITE REACTION [None]
  - INJECTION SITE SWELLING [None]
  - INSOMNIA [None]
  - LOSS OF CONSCIOUSNESS [None]
  - MEMORY IMPAIRMENT [None]
  - MICTURITION DISORDER [None]
  - MUSCLE SPASMS [None]
  - MYALGIA [None]
  - NAUSEA [None]
  - NERVOUS SYSTEM DISORDER [None]
  - ORAL INTAKE REDUCED [None]
  - PELVIC PAIN [None]
  - PHARYNGOLARYNGEAL PAIN [None]
  - PHOTOSENSITIVITY REACTION [None]
  - PLATELET COUNT DECREASED [None]
  - POLYDIPSIA [None]
  - PRODUCTIVE COUGH [None]
  - PRURITUS [None]
  - PYREXIA [None]
  - RECTAL HAEMORRHAGE [None]
  - RENAL IMPAIRMENT [None]
  - RETCHING [None]
  - SPUTUM DISCOLOURED [None]
  - STRESS [None]
  - SUICIDAL IDEATION [None]
  - SWELLING [None]
  - THIRST [None]
  - TONGUE DISCOLOURATION [None]
  - VOMITING [None]
  - WEIGHT DECREASED [None]
  - WHITE BLOOD CELL COUNT DECREASED [None]
